FAERS Safety Report 5007025-6 (Version None)
Quarter: 2006Q2

REPORT INFORMATION
  Report Type: 
  Country: None (occurrence: None)
  Receive Date: 20060517
  Receipt Date: 20060504
  Transmission Date: 20061013
  Serious: Yes (Hospitalization)
  Sender: FDA-Public Use
  Company Number: 224980

PATIENT
  Age: 69 Year
  Sex: Male
  Weight: 100 kg

DRUGS (10)
  1. RITUXIMAB  ( RITUXIMAB ) CONC FOR SOLUTION FOR INFUSION [Suspect]
     Indication: CHRONIC LYMPHOCYTIC LEUKAEMIA
     Dosage: 1050 MG, Q28D, INTRAVENOUS
     Route: 042
     Dates: start: 20060123, end: 20060419
  2. CYCLOPHOSPHAMIDE [Suspect]
     Indication: CHRONIC LYMPHOCYTIC LEUKAEMIA
     Dosage: 550 MG, QDX3D/28DC, INTRAVENOUS
     Route: 042
     Dates: start: 20060124, end: 20060421
  3. FLUDARABINE [Suspect]
     Indication: CHRONIC LYMPHOCYTIC LEUKAEMIA
     Dosage: 50 MG, QDX3D/28DC, INTRAVENOUS
     Route: 042
     Dates: start: 20060124, end: 20060421
  4. CALCIUM CARBONATE (CALCIUM CARBONATE) [Concomitant]
  5. VALSARTAN [Concomitant]
  6. PRAZOSINE (PRAZOSIN HYDROCHLORIDE) [Concomitant]
  7. DOMPERIDON (DOMPERIDONE) [Concomitant]
  8. PANTOPRAZOLE SODIUM [Concomitant]
  9. FENOFIBRATE [Concomitant]
  10. RACECADOTRIL (RACECADOTRIL) [Concomitant]

REACTIONS (1)
  - FEBRILE BONE MARROW APLASIA [None]
